FAERS Safety Report 10572770 (Version 1)
Quarter: 2014Q4

REPORT INFORMATION
  Report Type: Spontaneous
  Country: GB (occurrence: None)
  Receive Date: 20141106
  Receipt Date: 20141106
  Transmission Date: 20150529
  Serious: Yes (Other)
  Sender: FDA-Public Use
  Company Number: IMP_08027_2014

PATIENT
  Age: 68 Year
  Sex: Male

DRUGS (1)
  1. CABERGOLINE (CABERGOLINE) [Suspect]
     Active Substance: CABERGOLINE
     Indication: PITUITARY TUMOUR BENIGN
     Dosage: (DF), (DF) (UNKNOWN UNTIL NOT CONTINUING), (UNKNOWN)

REACTIONS (1)
  - Cerebrospinal fluid leakage [None]
